FAERS Safety Report 21160924 (Version 3)
Quarter: 2022Q3

REPORT INFORMATION
  Report Type: Spontaneous
  Country: FR (occurrence: FR)
  Receive Date: 20220802
  Receipt Date: 20220811
  Transmission Date: 20221027
  Serious: Yes (Hospitalization)
  Sender: FDA-Public Use
  Company Number: FR-SANOFI-01202143

PATIENT
  Age: 85 Year
  Sex: Male

DRUGS (4)
  1. LOVENOX [Suspect]
     Active Substance: ENOXAPARIN SODIUM
     Dosage: PRESCRIPTION OF LOVENOX 6000 IU
  2. LOVENOX [Suspect]
     Active Substance: ENOXAPARIN SODIUM
     Dosage: LOVENOX 4000 IU 1 INJECTION IN THE EVENING
     Dates: start: 202112
  3. LEVOTHYROXINE SODIUM [Concomitant]
     Active Substance: LEVOTHYROXINE SODIUM
     Dosage: UNK
  4. LEVOTHYROXINE SODIUM [Concomitant]
     Active Substance: LEVOTHYROXINE SODIUM
     Indication: Autoimmune thyroiditis
     Dosage: 6000IU

REACTIONS (7)
  - Muscle spasticity [Unknown]
  - Bowel movement irregularity [Unknown]
  - Tachycardia [Unknown]
  - Muscle spasms [Unknown]
  - Fibrin D dimer increased [Unknown]
  - Blood pressure fluctuation [Unknown]
  - Hypersensitivity [Unknown]

NARRATIVE: CASE EVENT DATE: 20201001
